FAERS Safety Report 8316238 (Version 6)
Quarter: 2012Q4

REPORT INFORMATION
  Report Type: Report from Study
  Country: AU (occurrence: AU)
  Receive Date: 20111229
  Receipt Date: 20120928
  Transmission Date: 20130627
  Serious: Yes (Life-Threatening, Hospitalization, Disabling)
  Sender: FDA-Public Use
  Company Number: AU-SANOFI-AVENTIS-2011SA022177

PATIENT
  Age: 67 Year
  Sex: Female
  Weight: 76.4 kg

DRUGS (25)
  1. OXALIPLATIN [Suspect]
     Indication: RECTAL CANCER
     Dosage: Actual dose given: 104 mg
     Route: 042
     Dates: start: 20110221, end: 20110321
  2. OXALIPLATIN [Suspect]
     Indication: RECTAL CANCER
     Route: 042
     Dates: end: 20110810
  3. CAPECITABINE [Suspect]
     Indication: RECTAL CANCER
     Dosage: Actual dose given: 1000 mg, 825 mg/m2 , BID D1-33
     Route: 048
     Dates: start: 20110221, end: 20110401
  4. CAPECITABINE [Suspect]
     Indication: RECTAL CANCER
     Route: 048
     Dates: end: 20110810
  5. THERAPEUTIC RADIOPHARMACEUTICALS [Suspect]
     Indication: RECTAL CANCER
     Dosage: 28 fractions of radiothrapy at a dose of 1.8 gy per fraction
     Route: 065
     Dates: start: 20110401
  6. THERAPEUTIC RADIOPHARMACEUTICALS [Suspect]
     Indication: RECTAL CANCER
     Route: 065
     Dates: start: 20110221
  7. THERAPEUTIC RADIOPHARMACEUTICALS [Suspect]
     Indication: RECTAL CANCER
     Route: 065
     Dates: end: 20110810
  8. VERAPAMIL [Concomitant]
     Indication: HYPERTENSION
     Route: 048
  9. DICLOFENAC [Concomitant]
     Indication: RHEUMATOID ARTHRITIS
     Route: 048
  10. FLUTICASONE [Concomitant]
     Indication: ASTHMA
     Dosage: dose: 2 puffs
     Route: 055
  11. SALMETEROL [Concomitant]
     Indication: ASTHMA
     Dosage: 25 mcg, dose: 2 puffs
     Route: 055
  12. OLMESARTAN [Concomitant]
     Indication: HYPERTENSION
     Route: 048
  13. PREDNISOLONE [Concomitant]
     Indication: RHEUMATOID ARTHRITIS
     Route: 048
  14. PANTOPRAZOLE [Concomitant]
     Indication: GASTROOESOPHAGEAL REFLUX
     Route: 048
  15. COLECALCIFEROL [Concomitant]
     Indication: VITAMIN D
     Route: 048
  16. METHOTREXATE [Concomitant]
     Indication: RHEUMATOID ARTHRITIS
     Route: 048
  17. FOLIC ACID [Concomitant]
     Indication: ANEMIA
     Route: 048
  18. FERROUS SULPHATE [Concomitant]
     Indication: IRON REPLACEMENT
     Route: 048
  19. PARACETAMOL [Concomitant]
     Indication: PAIN
     Route: 048
  20. ASPIRIN [Concomitant]
     Indication: ATRIAL FIBRILLATION
  21. METOCLOPRAMIDE [Concomitant]
     Indication: NAUSEA
     Route: 048
     Dates: end: 20111102
  22. METOPROLOL [Concomitant]
     Indication: ATRIAL FIBRILLATION
     Route: 048
     Dates: start: 20110406
  23. ENOXAPARIN [Concomitant]
     Indication: ATRIAL FIBRILLATION
     Route: 058
     Dates: start: 20110626, end: 20111102
  24. POTASSIUM [Concomitant]
     Indication: HYPOKALEMIA
     Route: 048
     Dates: start: 20110819, end: 20111102
  25. MAGNESIUM [Concomitant]
     Indication: MAGNESIUM LOW
     Route: 048
     Dates: start: 20110819, end: 20111102

REACTIONS (10)
  - Female genital tract fistula [Recovered/Resolved]
  - Decreased appetite [Recovered/Resolved]
  - Hypoalbuminaemia [Recovered/Resolved]
  - Hypokalaemia [Recovered/Resolved]
  - Urinary tract infection [Recovered/Resolved]
  - Pyrexia [Recovered/Resolved]
  - Atrial fibrillation [Recovered/Resolved]
  - Anastomotic leak [Recovered/Resolved]
  - Dehydration [Recovered/Resolved]
  - Decreased appetite [Recovered/Resolved]
